FAERS Safety Report 20058593 (Version 1)
Quarter: 2021Q4

REPORT INFORMATION
  Report Type: Spontaneous
  Country: FR (occurrence: FR)
  Receive Date: 20211111
  Receipt Date: 20211111
  Transmission Date: 20220303
  Serious: Yes (Hospitalization)
  Sender: FDA-Public Use
  Company Number: None

PATIENT
  Age: 63 Year
  Sex: Male

DRUGS (1)
  1. KEYTRUDA [Suspect]
     Active Substance: PEMBROLIZUMAB
     Indication: Lung cancer metastatic
     Dosage: 200 MILLIGRAM, CYCLICAL
     Route: 041
     Dates: start: 20200717, end: 20201030

REACTIONS (1)
  - Paraesthesia [Recovered/Resolved]

NARRATIVE: CASE EVENT DATE: 20200730
